FAERS Safety Report 21566609 (Version 1)
Quarter: 2022Q4

REPORT INFORMATION
  Report Type: Spontaneous
  Country: US (occurrence: US)
  Receive Date: 20221108
  Receipt Date: 20221108
  Transmission Date: 20230113
  Serious: No
  Sender: FDA-Public Use
  Company Number: US-PFIZER INC-PV202200097362

PATIENT
  Age: 71 Year
  Sex: Female
  Weight: 73.8 kg

DRUGS (1)
  1. RIFABUTIN [Suspect]
     Active Substance: RIFABUTIN
     Dosage: UNK

REACTIONS (3)
  - Urticaria [Unknown]
  - Vomiting [Unknown]
  - Nausea [Unknown]
